FAERS Safety Report 7982131-2 (Version None)
Quarter: 2011Q4

REPORT INFORMATION
  Report Type: 
  Country: None (occurrence: None)
  Receive Date: 20111215
  Receipt Date: 20111213
  Transmission Date: 20120403
  Serious: No
  Sender: FDA-Public Use
  Company Number: US-PFIZER INC-2011303861

PATIENT
  Age: 7 Year
  Sex: Male
  Weight: 23.129 kg

DRUGS (1)
  1. CHILDREN'S ADVIL [Suspect]
     Indication: PYREXIA
     Dosage: UNK, AS NEEDED
     Route: 048
     Dates: start: 20111213, end: 20111213

REACTIONS (2)
  - URTICARIA [None]
  - PRURITUS [None]
